FAERS Safety Report 6394851-4 (Version None)
Quarter: 2009Q4

REPORT INFORMATION
  Report Type: 
  Country: None (occurrence: None)
  Receive Date: 20091009
  Receipt Date: 20090820
  Transmission Date: 20100525
  Serious: Yes (Other)
  Sender: FDA-Public Use
  Company Number: US-NAPPMUNDI-USA-2009-0039773

PATIENT
  Sex: Male
  Weight: 119.73 kg

DRUGS (1)
  1. OXYCONTIN [Suspect]
     Indication: COMPLEX REGIONAL PAIN SYNDROME
     Dosage: 10 MG, BID
     Dates: start: 19990914, end: 20051204

REACTIONS (10)
  - CONSTIPATION [None]
  - DIZZINESS [None]
  - DRUG DEPENDENCE [None]
  - DRUG WITHDRAWAL SYNDROME [None]
  - FATIGUE [None]
  - NAUSEA [None]
  - NERVE INJURY [None]
  - RESTLESSNESS [None]
  - SUICIDAL IDEATION [None]
  - UNEVALUABLE EVENT [None]
